FAERS Safety Report 21347488 (Version 2)
Quarter: 2022Q4

REPORT INFORMATION
  Report Type: Report from Study
  Country: US (occurrence: US)
  Receive Date: 20220919
  Receipt Date: 20221018
  Transmission Date: 20230113
  Serious: Yes (Other)
  Sender: FDA-Public Use
  Company Number: US-BRISTOL-MYERS SQUIBB COMPANY-2022-105791

PATIENT
  Age: 56 Year
  Sex: Male
  Weight: 78.47 kg

DRUGS (2)
  1. REVLIMID [Suspect]
     Active Substance: LENALIDOMIDE
     Indication: Plasma cell myeloma
     Dosage: DAILY ON DAYS 1-21 ON A 28 DAY CYCLE
     Route: 048
     Dates: start: 201802
  2. REVLIMID [Suspect]
     Active Substance: LENALIDOMIDE
     Route: 048

REACTIONS (6)
  - Gingival discomfort [Unknown]
  - Pruritus [Unknown]
  - Diarrhoea [Unknown]
  - Nausea [Unknown]
  - Gastric disorder [Unknown]
  - Gingival pain [Unknown]
